FAERS Safety Report 7462239-0 (Version None)
Quarter: 2011Q2

REPORT INFORMATION
  Report Type: 
  Country: None (occurrence: None)
  Receive Date: 20110506
  Receipt Date: 20110505
  Transmission Date: 20111010
  Serious: Yes (Hospitalization)
  Sender: FDA-Public Use
  Company Number: IT-SANOFI-AVENTIS-2011SA027504

PATIENT
  Age: 77 Year
  Sex: Female

DRUGS (9)
  1. ARAVA [Suspect]
     Indication: RHEUMATOID ARTHRITIS
     Route: 048
     Dates: start: 20110312, end: 20110428
  2. PREDNISONE [Concomitant]
     Route: 048
  3. ACTONEL [Concomitant]
     Route: 065
  4. COLECALCIFEROL [Concomitant]
     Route: 065
  5. OXYCODONE HCL AND ACETAMINOPHEN [Concomitant]
     Route: 065
  6. DELTACORTENE [Concomitant]
     Route: 048
  7. METHOTREXATE [Suspect]
     Route: 030
     Dates: start: 20110312, end: 20110428
  8. FOLINA [Concomitant]
     Route: 048
  9. METHOTREXATE [Suspect]
     Indication: RHEUMATOID ARTHRITIS
     Route: 048
     Dates: start: 20110312, end: 20110428

REACTIONS (2)
  - HYPOGAMMAGLOBULINAEMIA [None]
  - ANAEMIA [None]
